FAERS Safety Report 5514308-X (Version None)
Quarter: 2007Q4

REPORT INFORMATION
  Report Type: 
  Country: None (occurrence: None)
  Receive Date: 20071113
  Receipt Date: 20070510
  Transmission Date: 20080405
  Serious: No
  Sender: FDA-Public Use
  Company Number: A0646278A

PATIENT
  Age: 85 Year
  Sex: Female

DRUGS (13)
  1. COREG [Suspect]
     Indication: HYPERTENSION
     Dosage: 6.25MG TWICE PER DAY
     Route: 048
     Dates: start: 20070318
  2. HYDROCORTISONE [Suspect]
     Indication: DRUG USE FOR UNKNOWN INDICATION
     Route: 065
  3. LYRICA [Concomitant]
  4. SPIRONOLACTONE [Concomitant]
  5. ALDACTAZIDE [Concomitant]
  6. CALCIUM TABLETS [Concomitant]
  7. VITAMIN D [Concomitant]
  8. CHONDROITIN [Concomitant]
  9. LEVOTHYROXINE SODIUM [Concomitant]
  10. VITAMIN B6 [Concomitant]
  11. VITAMIN E [Concomitant]
  12. NASACORT [Concomitant]
  13. PULMICORT [Concomitant]

REACTIONS (5)
  - BLOOD PRESSURE INADEQUATELY CONTROLLED [None]
  - DEPRESSION [None]
  - HEADACHE [None]
  - MOOD ALTERED [None]
  - TINNITUS [None]
